FAERS Safety Report 5825221-2 (Version None)
Quarter: 2008Q3

REPORT INFORMATION
  Report Type: 
  Country: None (occurrence: None)
  Receive Date: 20080729
  Receipt Date: 20080722
  Transmission Date: 20090109
  Serious: Yes (Other)
  Sender: FDA-Public Use
  Company Number: PHEH2008US04054

PATIENT
  Sex: Female

DRUGS (1)
  1. GLEEVEC [Suspect]
     Dates: start: 20080301

REACTIONS (6)
  - CARBOHYDRATE ANTIGEN 125 INCREASED [None]
  - CHEST PAIN [None]
  - PAIN [None]
  - PAINFUL RESPIRATION [None]
  - PLEURAL EFFUSION [None]
  - SLEEP DISORDER [None]
